FAERS Safety Report 15037302 (Version 1)
Quarter: 2018Q2

REPORT INFORMATION
  Report Type: Spontaneous
  Country: DE (occurrence: DE)
  Receive Date: 20180620
  Receipt Date: 20180620
  Transmission Date: 20180711
  Serious: Yes (Hospitalization)
  Sender: FDA-Public Use
  Company Number: DE-TEVA-2018-DE-908662

PATIENT
  Age: 57 Year
  Sex: Male

DRUGS (3)
  1. CISPLATIN. [Suspect]
     Active Substance: CISPLATIN
     Dosage: NK MG, NK
     Route: 065
  2. LEVOTHYROXIN-NATRIUM [Concomitant]
     Active Substance: LEVOTHYROXINE SODIUM
     Dosage: 75 MICROGRAM DAILY; 75 ?G, 1-0-0-0
     Route: 065
  3. ETOPOSIDE. [Suspect]
     Active Substance: ETOPOSIDE
     Dosage: NK MG, NK
     Route: 065

REACTIONS (6)
  - Fatigue [Unknown]
  - Feeling cold [Unknown]
  - General physical health deterioration [Unknown]
  - Hypoacusis [Unknown]
  - Dyspnoea [Unknown]
  - Oropharyngeal pain [Unknown]
